FAERS Safety Report 8763057 (Version 1)
Quarter: 2012Q4

REPORT INFORMATION
  Report Type: Spontaneous
  Country: US (occurrence: None)
  Receive Date: 20120830
  Receipt Date: 20120830
  Transmission Date: 20130627
  Serious: No
  Sender: FDA-Public Use
  Company Number: None

PATIENT
  Age: 49 Year
  Sex: Male

DRUGS (1)
  1. HYDROCODON/APAP [Suspect]
     Dosage: 10/500 1 TABLET TID po
     Route: 048
     Dates: start: 20120725, end: 20120731

REACTIONS (1)
  - Sedation [None]
